FAERS Safety Report 7138485-2 (Version None)
Quarter: 2010Q4

REPORT INFORMATION
  Report Type: 
  Country: None (occurrence: None)
  Receive Date: 20101206
  Receipt Date: 20101202
  Transmission Date: 20110411
  Serious: Yes (Hospitalization)
  Sender: FDA-Public Use
  Company Number: RU-PFIZER INC-2010163222

PATIENT
  Age: 48 Year
  Sex: Male

DRUGS (1)
  1. CELEBREX [Suspect]
     Dosage: 200 MG, 2X/DAY
     Route: 048
     Dates: start: 20101101, end: 20101101

REACTIONS (3)
  - ASPHYXIA [None]
  - FACE OEDEMA [None]
  - HYPERSENSITIVITY [None]
